FAERS Safety Report 11272733 (Version 9)
Quarter: 2017Q3

REPORT INFORMATION
  Report Type: Report from Study
  Country: US (occurrence: US)
  Receive Date: 20150715
  Receipt Date: 20170911
  Transmission Date: 20171127
  Serious: Yes (Hospitalization, Other)
  Sender: FDA-Public Use
  Company Number: US-ROCHE-1605228

PATIENT
  Age: 71 Year
  Sex: Female
  Weight: 63.56 kg

DRUGS (11)
  1. ASPIRIN. [Concomitant]
     Active Substance: ASPIRIN
     Route: 065
  2. CALTRATE [Concomitant]
     Active Substance: CALCIUM CARBONATE
     Dosage: 600-800 M
     Route: 065
  3. ESBRIET [Suspect]
     Active Substance: PIRFENIDONE
     Dosage: TWO CAPSULES THREE TIMES DAILY WITH FOOD.
     Route: 048
     Dates: start: 20170712
  4. ESBRIET [Suspect]
     Active Substance: PIRFENIDONE
     Dosage: DECREASED DOSE TO 2 CAPS TID ABOUT 2 WEEKS AGO
     Route: 048
     Dates: start: 20150518, end: 201703
  5. DAPSONE. [Suspect]
     Active Substance: DAPSONE
     Indication: PRODUCT USED FOR UNKNOWN INDICATION
     Route: 065
  6. PRAVASTATIN. [Concomitant]
     Active Substance: PRAVASTATIN
     Indication: HYPERLIPIDAEMIA
     Route: 048
     Dates: start: 20150506
  7. PREDNISONE. [Concomitant]
     Active Substance: PREDNISONE
     Indication: PULMONARY FIBROSIS
     Route: 048
  8. ATORVASTATIN [Concomitant]
     Active Substance: ATORVASTATIN
     Indication: HYPERLIPIDAEMIA
     Route: 048
     Dates: start: 201402, end: 201502
  9. VISINE (UNITED STATES) [Concomitant]
     Dosage: 0.025-0%
     Route: 065
  10. ESBRIET [Suspect]
     Active Substance: PIRFENIDONE
     Indication: IDIOPATHIC PULMONARY FIBROSIS
     Dosage: 2 CAPS PO TID
     Route: 048
     Dates: start: 20150515
  11. ESBRIET [Suspect]
     Active Substance: PIRFENIDONE
     Dosage: THREE CAPSULES THREE TIMES DAILY.
     Route: 048

REACTIONS (14)
  - Liver injury [Recovered/Resolved]
  - Dizziness [Unknown]
  - Emotional disorder [Unknown]
  - Depression [Unknown]
  - Nausea [Unknown]
  - Decreased appetite [Recovered/Resolved]
  - Depression [Unknown]
  - Paraesthesia [Unknown]
  - Diarrhoea [Unknown]
  - Anxiety [Unknown]
  - Vertigo positional [Recovered/Resolved]
  - Diarrhoea [Unknown]
  - Nausea [Unknown]
  - Pyrexia [Recovered/Resolved]

NARRATIVE: CASE EVENT DATE: 20150615
